FAERS Safety Report 4375845-7 (Version None)
Quarter: 2004Q2

REPORT INFORMATION
  Report Type: 
  Country: None (occurrence: None)
  Receive Date: 20040609
  Receipt Date: 20040609
  Transmission Date: 20050107
  Serious: Yes (Life-Threatening, Hospitalization)
  Sender: FDA-Public Use
  Company Number: None

PATIENT
  Sex: Female
  Weight: 80 kg

DRUGS (5)
  1. ACETAMINOPHEN [Suspect]
     Indication: PAIN
     Dosage: 1000 MG PO Q 2 HRS
     Route: 048
  2. HYDROMORPHONE HCL [Concomitant]
  3. ACETAMINOPHEN [Concomitant]
  4. ALPRAZOLEM [Concomitant]
  5. SERTRALINE HCL [Concomitant]

REACTIONS (5)
  - ABDOMINAL PAIN [None]
  - ASPARTATE AMINOTRANSFERASE INCREASED [None]
  - NAUSEA [None]
  - PYREXIA [None]
  - SKIN INFECTION [None]
